FAERS Safety Report 14948764 (Version 1)
Quarter: 2018Q2

REPORT INFORMATION
  Report Type: Spontaneous
  Country: NO (occurrence: NO)
  Receive Date: 20180529
  Receipt Date: 20180529
  Transmission Date: 20180711
  Serious: Yes (Other)
  Sender: FDA-Public Use
  Company Number: NO-MYLANLABS-2018M1033938

PATIENT
  Age: 26 Year
  Sex: Female
  Weight: 112 kg

DRUGS (5)
  1. FLUOXETINE MYLAN 20 MG, G?LULE [Suspect]
     Active Substance: FLUOXETINE HYDROCHLORIDE
     Indication: DEPRESSION
  2. ATARAX [Concomitant]
     Active Substance: HYDROXYZINE HYDROCHLORIDE
     Indication: RESTLESSNESS
  3. FLUOXETINE MYLAN 20 MG, G?LULE [Suspect]
     Active Substance: FLUOXETINE HYDROCHLORIDE
     Indication: OBSESSIVE-COMPULSIVE DISORDER
     Dosage: 20 MG, QD
     Dates: start: 201706
  4. ATARAX [Concomitant]
     Active Substance: HYDROXYZINE HYDROCHLORIDE
     Indication: INSOMNIA
     Dosage: UNK
  5. ATARAX [Concomitant]
     Active Substance: HYDROXYZINE HYDROCHLORIDE
     Indication: PRURITUS

REACTIONS (5)
  - Anger [Not Recovered/Not Resolved]
  - Intentional self-injury [Unknown]
  - Violence-related symptom [Unknown]
  - Aggression [Unknown]
  - Screaming [Unknown]

NARRATIVE: CASE EVENT DATE: 201706
